FAERS Safety Report 8747755 (Version 2)
Quarter: 2012Q4

REPORT INFORMATION
  Report Type: 
  Country: FR (occurrence: FR)
  Receive Date: 20120827
  Receipt Date: 20120830
  Transmission Date: 20130627
  Serious: Yes (Death, Hospitalization, Other)
  Sender: FDA-Public Use
  Company Number: FR-PFIZER INC-2012194435

PATIENT
  Age: 64 Year
  Sex: Female
  Weight: 60 kg

DRUGS (1)
  1. SUTENT [Suspect]
     Indication: RENAL CANCER METASTATIC
     Dosage: 50 mg, 1x/day, 4 weeks out off 6
     Route: 048
     Dates: start: 2011, end: 20120807

REACTIONS (6)
  - Multi-organ failure [Fatal]
  - Cardiogenic shock [Fatal]
  - Cardiac failure [Not Recovered/Not Resolved]
  - Hypertension [Unknown]
  - Secondary hypothyroidism [Unknown]
  - Thrombocytopenia [Unknown]
